FAERS Safety Report 12220515 (Version 1)
Quarter: 2016Q1

REPORT INFORMATION
  Report Type: Spontaneous
  Country: US (occurrence: US)
  Receive Date: 20160330
  Receipt Date: 20160330
  Transmission Date: 20160526
  Serious: No
  Sender: FDA-Public Use
  Company Number: US-MYLANLABS-2015M1015389

PATIENT
  Sex: Female
  Weight: 77.98 kg

DRUGS (2)
  1. EMSAM [Suspect]
     Active Substance: SELEGILINE
     Indication: MAJOR DEPRESSION
     Route: 062
  2. EMSAM [Suspect]
     Active Substance: SELEGILINE
     Indication: ANXIETY

REACTIONS (1)
  - Application site vesicles [Recovered/Resolved]
